FAERS Safety Report 21751697 (Version 1)
Quarter: 2022Q4

REPORT INFORMATION
  Report Type: Report from Study
  Country: NL (occurrence: NL)
  Receive Date: 20221220
  Receipt Date: 20221220
  Transmission Date: 20230113
  Serious: Yes (Other)
  Sender: FDA-Public Use
  Company Number: NL-BIOGEN-2022BI01176248

PATIENT
  Age: 36 Year
  Sex: Female

DRUGS (1)
  1. VUMERITY [Suspect]
     Active Substance: DIROXIMEL FUMARATE
     Indication: Multiple sclerosis
     Dosage: 2 TIMES A DAY 2 CAPSULES
     Route: 050
     Dates: start: 20220606

REACTIONS (3)
  - Deafness [Not Recovered/Not Resolved]
  - Hemiparaesthesia [Not Recovered/Not Resolved]
  - Pruritus [Not Recovered/Not Resolved]

NARRATIVE: CASE EVENT DATE: 20221128
